FAERS Safety Report 17883386 (Version 1)
Quarter: 2020Q2

REPORT INFORMATION
  Report Type: Report from Study
  Country: BR (occurrence: BR)
  Receive Date: 20200611
  Receipt Date: 20200611
  Transmission Date: 20200714
  Serious: Yes (Hospitalization)
  Sender: FDA-Public Use
  Company Number: BR-TOLMAR, INC.-20BR020295

PATIENT
  Age: 57 Year
  Sex: Male

DRUGS (1)
  1. ELIGARD [Suspect]
     Active Substance: LEUPROLIDE ACETATE
     Indication: PROSTATE CANCER
     Dosage: 45 MG, Q 6 MONTH
     Route: 058
     Dates: start: 20190422

REACTIONS (4)
  - Dysuria [Recovering/Resolving]
  - Urinary retention [Recovering/Resolving]
  - Prostatic obstruction [Recovering/Resolving]
  - Pyuria [Recovering/Resolving]

NARRATIVE: CASE EVENT DATE: 20200202
